FAERS Safety Report 12873419 (Version 4)
Quarter: 2016Q4

REPORT INFORMATION
  Report Type: Spontaneous
  Country: US (occurrence: US)
  Receive Date: 20161021
  Receipt Date: 20161220
  Transmission Date: 20170207
  Serious: Yes (Disabling)
  Sender: FDA-Public Use
  Company Number: US-SAOL THERAPEUTICS-2016SAO00897

PATIENT
  Age: 52 Year
  Sex: Male
  Weight: 70.3 kg

DRUGS (3)
  1. GABLOFEN [Suspect]
     Active Substance: BACLOFEN
     Dosage: 1153 ?G, \DAY
     Route: 037
     Dates: start: 20161013, end: 20161019
  2. GABLOFEN [Suspect]
     Active Substance: BACLOFEN
     Dosage: 842.4 ?G, \DAY
     Route: 037
     Dates: start: 20161025
  3. GABLOFEN [Suspect]
     Active Substance: BACLOFEN
     Dosage: 934.9 ?G, \DAY
     Route: 037
     Dates: start: 20161019, end: 20161025

REACTIONS (8)
  - Amnesia [Unknown]
  - Fall [Unknown]
  - Road traffic accident [Unknown]
  - Dizziness postural [Recovered/Resolved]
  - Muscular weakness [Unknown]
  - Paralysis [Unknown]
  - Vomiting [Unknown]
  - Gait disturbance [Unknown]

NARRATIVE: CASE EVENT DATE: 2014
